FAERS Safety Report 4876112-5 (Version None)
Quarter: 2006Q1

REPORT INFORMATION
  Report Type: 
  Country: None (occurrence: None)
  Receive Date: 20060106
  Receipt Date: 20060106
  Transmission Date: 20060701
  Serious: No
  Sender: FDA-Public Use
  Company Number: None

PATIENT

DRUGS (3)
  1. SIMARX 54838-522-70 [Suspect]
  2. CYPRESS 60258-090-08 [Suspect]
  3. CHOLINE MAGNESIUM TRISALICYLATE LIQUID [Suspect]

REACTIONS (1)
  - MEDICATION ERROR [None]
